FAERS Safety Report 8234455-1 (Version None)
Quarter: 2012Q1

REPORT INFORMATION
  Report Type: 
  Country: None (occurrence: None)
  Receive Date: 20120326
  Receipt Date: 20120312
  Transmission Date: 20120608
  Serious: Yes (Hospitalization)
  Sender: FDA-Public Use
  Company Number: CA-ELI_LILLY_AND_COMPANY-CA201203004327

PATIENT

DRUGS (2)
  1. GEMCITABINE HYDROCHLORIDE [Suspect]
     Indication: PANCREATIC CARCINOMA
     Dosage: 1000 MG/M2 OVER 30 MINUTES FOR 3 WEEKS FOLLOWED BY ONE WEEK BREAK
  2. SARACATINIB [Concomitant]

REACTIONS (2)
  - PULMONARY EMBOLISM [None]
  - INTERSTITIAL LUNG DISEASE [None]
